FAERS Safety Report 15049029 (Version 2)
Quarter: 2018Q3

REPORT INFORMATION
  Report Type: Spontaneous
  Country: FR (occurrence: FR)
  Receive Date: 20180622
  Receipt Date: 20180911
  Transmission Date: 20181010
  Serious: Yes (Hospitalization)
  Sender: FDA-Public Use
  Company Number: PHHY2018FR026647

PATIENT
  Age: 76 Year
  Sex: Male

DRUGS (4)
  1. PRAVASTATIN SODIUM. [Suspect]
     Active Substance: PRAVASTATIN SODIUM
     Indication: DYSLIPIDAEMIA
     Dosage: UNK
     Route: 048
  2. MONO TILDIEM [Suspect]
     Active Substance: DILTIAZEM HYDROCHLORIDE
     Indication: HYPERTENSION
     Dosage: UNK
     Route: 048
  3. MONO TILDIEM [Suspect]
     Active Substance: DILTIAZEM HYDROCHLORIDE
     Route: 048
  4. COAPROVEL [Suspect]
     Active Substance: HYDROCHLOROTHIAZIDE\IRBESARTAN
     Indication: HYPERTENSION
     Dosage: UNK
     Route: 048

REACTIONS (2)
  - Eosinophilia [Recovered/Resolved]
  - Eosinophilic pleural effusion [Recovered/Resolved]

NARRATIVE: CASE EVENT DATE: 201803
